FAERS Safety Report 6053225-6 (Version None)
Quarter: 2009Q1

REPORT INFORMATION
  Report Type: 
  Country: None (occurrence: None)
  Receive Date: 20090123
  Receipt Date: 20090109
  Transmission Date: 20090719
  Serious: Yes (Hospitalization)
  Sender: FDA-Public Use
  Company Number: MIN-00459

PATIENT

DRUGS (1)
  1. MINOCYCLINE HCL [Suspect]
     Indication: CHOLANGITIS SCLEROSING
     Dosage: 100 MG, TWICE DAILY, ORALLY
     Route: 048

REACTIONS (2)
  - COLON NEOPLASM [None]
  - RECTAL NEOPLASM [None]
